FAERS Safety Report 11525769 (Version 1)
Quarter: 2015Q3

REPORT INFORMATION
  Report Type: Report from Study
  Country: None (occurrence: GB)
  Receive Date: 20150918
  Receipt Date: 20150918
  Transmission Date: 20151125
  Serious: Yes (Death)
  Sender: FDA-Public Use
  Company Number: GB-MEDAC PHARMA, INC.-1042116

PATIENT
  Age: 13 Year
  Sex: Female
  Weight: 56 kg

DRUGS (8)
  1. PROPOFOL. [Concomitant]
     Active Substance: PROPOFOL
  2. ANAESTHETIC [Concomitant]
     Active Substance: UNSPECIFIED INGREDIENT
  3. OXYGEN. [Concomitant]
     Active Substance: OXYGEN
  4. METHOTREXATE (METHOTREXATE SODIUM) [Suspect]
     Active Substance: METHOTREXATE SODIUM
     Route: 039
     Dates: start: 20080801, end: 20081209
  5. RADIOTHERAPY [Concomitant]
     Active Substance: RADIATION THERAPY
  6. METHOTREXATE [Suspect]
     Active Substance: METHOTREXATE
     Indication: ACUTE LYMPHOCYTIC LEUKAEMIA
     Route: 042
     Dates: start: 20081209, end: 20081209
  7. NITROUS OXIDE. [Suspect]
     Active Substance: NITROUS OXIDE
     Route: 055
     Dates: start: 20080801, end: 200812
  8. CHEMOTHERAPY [Concomitant]
     Active Substance: UNSPECIFIED INGREDIENT

REACTIONS (8)
  - Leukoencephalopathy [Fatal]
  - Affect lability [Not Recovered/Not Resolved]
  - Neurological decompensation [Not Recovered/Not Resolved]
  - Dysarthria [Not Recovered/Not Resolved]
  - Coordination abnormal [Not Recovered/Not Resolved]
  - Drug interaction [Unknown]
  - Lethargy [Not Recovered/Not Resolved]
  - Eyelid ptosis [Recovered/Resolved]

NARRATIVE: CASE EVENT DATE: 200812
